FAERS Safety Report 11306175 (Version 2)
Quarter: 2015Q3

REPORT INFORMATION
  Report Type: Spontaneous
  Country: US (occurrence: US)
  Receive Date: 20150723
  Receipt Date: 20150903
  Transmission Date: 20151125
  Serious: No
  Sender: FDA-Public Use
  Company Number: US-PFIZER INC-2015243055

PATIENT

DRUGS (3)
  1. SKELAXIN [Suspect]
     Active Substance: METAXALONE
     Indication: PAIN
  2. SKELAXIN [Suspect]
     Active Substance: METAXALONE
     Indication: NECK PAIN
     Dosage: UNK
  3. SKELAXIN [Suspect]
     Active Substance: METAXALONE
     Indication: NECK INJURY

REACTIONS (2)
  - Abdominal discomfort [Unknown]
  - Drug ineffective [Unknown]
